FAERS Safety Report 10015429 (Version 2)
Quarter: 2014Q1

REPORT INFORMATION
  Report Type: Spontaneous
  Country: FR (occurrence: FR)
  Receive Date: 20140317
  Receipt Date: 20140317
  Transmission Date: 20141002
  Serious: Yes (Hospitalization)
  Sender: FDA-Public Use
  Company Number: US-ASTRAZENECA-2014SE12542

PATIENT
  Age: 16 Month
  Sex: Male
  Weight: 5.7 kg

DRUGS (5)
  1. SYNAGIS [Suspect]
     Indication: ANTIVIRAL PROPHYLAXIS
     Route: 030
     Dates: start: 201310, end: 201403
  2. BECOTIDE [Concomitant]
     Indication: ASTHMA
     Dosage: 2 DF TWO TIMES A DAY LONG TERM TREATMENT
  3. BECOTIDE [Concomitant]
     Indication: BRONCHOPULMONARY DYSPLASIA
     Dosage: 2 DF TWO TIMES A DAY LONG TERM TREATMENT
  4. SINGULAIR (MONTELUKAST SEL DE NA) [Concomitant]
     Indication: ASTHMA
     Dosage: LONG TERM TREATMENT, EVERY DAY
  5. SINGULAIR (MONTELUKAST SEL DE NA) [Concomitant]
     Indication: BRONCHOPULMONARY DYSPLASIA
     Dosage: LONG TERM TREATMENT, EVERY DAY

REACTIONS (5)
  - Dyspnoea [Recovered/Resolved]
  - Lung infection [Recovered/Resolved]
  - Respiratory syncytial virus bronchiolitis [Recovered/Resolved]
  - Pyrexia [Recovered/Resolved]
  - Respiratory syncytial virus bronchitis [Unknown]
